FAERS Safety Report 9565636 (Version 2)
Quarter: 2013Q3

REPORT INFORMATION
  Report Type: Spontaneous
  Country: US (occurrence: US)
  Receive Date: 20130930
  Receipt Date: 20130930
  Transmission Date: 20140515
  Serious: No
  Sender: FDA-Public Use
  Company Number: US-COVIDIEN/TYCO HEALTHCARE/MALLINCKRODT-T201304178

PATIENT
  Age: 70 Year
  Sex: Female
  Weight: 82.54 kg

DRUGS (14)
  1. METHYLPHENIDATE HYDROCHLORIDE EXTENDED RELEASE TABLETS [Suspect]
     Indication: ATTENTION DEFICIT/HYPERACTIVITY DISORDER
     Dosage: 36 MG, QD
     Route: 048
     Dates: start: 201302, end: 20130818
  2. NUVIGIL [Concomitant]
     Indication: ATTENTION DEFICIT/HYPERACTIVITY DISORDER
     Dosage: UNK
     Route: 048
  3. LITHIUM [Concomitant]
     Indication: MANIA
     Dosage: UNK
     Route: 048
  4. LEVOTHYROXINE [Concomitant]
     Indication: HYPOTHYROIDISM
     Dosage: UNK
     Route: 048
  5. LISINOPRIL [Concomitant]
     Indication: HYPERTENSION
     Dosage: UNK
     Route: 048
  6. CELEBREX [Concomitant]
     Indication: ARTHRITIS
     Dosage: UNK
     Route: 048
  7. RISPERDAL [Concomitant]
     Indication: MANIA
     Dosage: UNK
  8. CRESTOR [Concomitant]
     Indication: BLOOD CHOLESTEROL INCREASED
     Dosage: UNK
  9. VICODIN [Concomitant]
     Indication: PAIN
  10. NEXIUM                             /01479302/ [Concomitant]
     Indication: GASTROOESOPHAGEAL REFLUX DISEASE
     Dosage: UNK
  11. XANAX [Concomitant]
     Indication: ANXIETY
     Dosage: UNK
  12. PROBIOTIC [Concomitant]
     Dosage: UNK
  13. CITRUCEL [Concomitant]
     Dosage: UNK
  14. QVAR [Concomitant]
     Indication: ASTHMA
     Dosage: UNK

REACTIONS (4)
  - Somnolence [Recovered/Resolved]
  - Feeling abnormal [Recovered/Resolved]
  - Insomnia [Not Recovered/Not Resolved]
  - Drug effect decreased [Recovered/Resolved]
